FAERS Safety Report 6034648-8 (Version None)
Quarter: 2009Q1

REPORT INFORMATION
  Report Type: 
  Country: None (occurrence: None)
  Receive Date: 20090112
  Receipt Date: 20080103
  Transmission Date: 20090719
  Serious: No
  Sender: FDA-Public Use
  Company Number: US-ABBOTT-08P-163-0432544-00

PATIENT
  Age: 69 Year
  Sex: Male
  Weight: 109 kg

DRUGS (1)
  1. HYTRIN [Suspect]
     Indication: DRUG USE FOR UNKNOWN INDICATION

REACTIONS (2)
  - ABDOMINAL PAIN UPPER [None]
  - EXPIRED DRUG ADMINISTERED [None]
